FAERS Safety Report 10374763 (Version 1)
Quarter: 2014Q1

REPORT INFORMATION
  Report Type: Spontaneous
  Country: US (occurrence: None)
  Receive Date: 20140306
  Receipt Date: 20140306
  Transmission Date: 20141002
  Serious: Yes (Hospitalization)
  Sender: FDA-Public Use
  Company Number: 163-21880-13063620

PATIENT
  Age: 75 Year
  Sex: Male
  Weight: 73.48 kg

DRUGS (9)
  1. REVLIMID (LENALIDOMIDE) (10 MILLIGRAMS, CAPSULES) [Suspect]
     Indication: PLASMA CELL MYELOMA
     Route: 048
     Dates: start: 20130524
  2. CLOPIDOGREL [Concomitant]
  3. BLOOD THINNERS (ANTITHROMBOTIC AGENTS) [Concomitant]
  4. LISINOPRIL [Concomitant]
  5. HYDRALAZINE HCL [Concomitant]
  6. METOPROLOL SUCCINATE [Concomitant]
  7. ALLOPURINOL [Concomitant]
  8. ATORVASTATIN CALCIUM (ATORVASTATIN) [Concomitant]
  9. COENZYME (UBIDECARENONE) [Concomitant]

REACTIONS (4)
  - Gastrointestinal ulcer haemorrhage [None]
  - Faeces discoloured [None]
  - Blood pressure decreased [None]
  - Contusion [None]
